FAERS Safety Report 6516334-0 (Version None)
Quarter: 2009Q4

REPORT INFORMATION
  Report Type: 
  Country: None (occurrence: None)
  Receive Date: 20091223
  Receipt Date: 20091215
  Transmission Date: 20100525
  Serious: Yes (Death, Hospitalization)
  Sender: FDA-Public Use
  Company Number: A0794776A

PATIENT
  Age: 85 Year
  Sex: Female

DRUGS (1)
  1. AVANDIA [Suspect]
     Indication: DIABETES MELLITUS
     Route: 048
     Dates: end: 20081201

REACTIONS (3)
  - CARDIOGENIC SHOCK [None]
  - MYOCARDIAL INFARCTION [None]
  - RENAL FAILURE [None]
